FAERS Safety Report 5784916-X (Version None)
Quarter: 2008Q2

REPORT INFORMATION
  Report Type: 
  Country: None (occurrence: None)
  Receive Date: 20080605
  Receipt Date: 20080416
  Transmission Date: 20081010
  Serious: No
  Sender: FDA-Public Use
  Company Number: A0723127A

PATIENT

DRUGS (5)
  1. ALLI [Suspect]
  2. EMERGEN-C [Concomitant]
     Route: 065
  3. FISH OIL [Concomitant]
  4. GLUCOSAMINE + CHONDROITIN [Concomitant]
  5. MSM [Concomitant]

REACTIONS (4)
  - ABDOMINAL STRANGULATED HERNIA [None]
  - MUSCLE CONTRACTIONS INVOLUNTARY [None]
  - MUSCLE SPASMS [None]
  - PAIN IN EXTREMITY [None]
